FAERS Safety Report 5244782-8 (Version None)
Quarter: 2007Q1

REPORT INFORMATION
  Report Type: 
  Country: None (occurrence: None)
  Receive Date: 20061201
  Receipt Date: 20060813
  Transmission Date: 20070707
  Serious: No
  Sender: FDA-Public Use
  Company Number: 2006PV019302

PATIENT
  Age: 65 Year
  Sex: Male
  Weight: 101.6057 kg

DRUGS (5)
  1. BYETTA [Suspect]
     Indication: DIABETES MELLITUS NON-INSULIN-DEPENDENT
     Dosage: 5 MCG;BID;SC
     Route: 058
     Dates: start: 20060726
  2. ACTOS /USA/ [Concomitant]
  3. METFORMIN [Concomitant]
  4. LANTUS [Concomitant]
  5. PRILOSEC [Concomitant]

REACTIONS (2)
  - NAUSEA [None]
  - WEIGHT DECREASED [None]
